FAERS Safety Report 22061345 (Version 1)
Quarter: 2023Q1

REPORT INFORMATION
  Report Type: Report from Study
  Country: US (occurrence: US)
  Receive Date: 20230304
  Receipt Date: 20230304
  Transmission Date: 20230417
  Serious: Yes (Hospitalization)
  Sender: FDA-Public Use
  Company Number: US-ABBVIE-21P-163-3944460-00

PATIENT
  Age: 51 Year
  Sex: Female

DRUGS (5)
  1. IBRUTINIB [Suspect]
     Active Substance: IBRUTINIB
     Indication: Chronic lymphocytic leukaemia
     Dosage: DAYS 1-28
     Route: 048
     Dates: start: 20200708, end: 20210524
  2. IBRUTINIB [Suspect]
     Active Substance: IBRUTINIB
     Indication: Chronic lymphocytic leukaemia
     Route: 048
     Dates: start: 20220528
  3. OBINUTUZUMAB [Concomitant]
     Active Substance: OBINUTUZUMAB
     Indication: Chronic lymphocytic leukaemia
     Dosage: TIME INTERVAL: CYCLICAL: DAY 1, CYCLE 1
     Route: 042
     Dates: start: 20200708
  4. OBINUTUZUMAB [Concomitant]
     Active Substance: OBINUTUZUMAB
     Indication: Chronic lymphocytic leukaemia
     Dosage: TIME INTERVAL: CYCLICAL: DAY 2, CYCLE 1
     Route: 042
  5. OBINUTUZUMAB [Concomitant]
     Active Substance: OBINUTUZUMAB
     Indication: Chronic lymphocytic leukaemia
     Dosage: TIME INTERVAL: CYCLICAL: DAY 8, CYCLE 1?DAY 15, CYCLE 1?DAY 1, CYCLE 2-6
     Route: 042

REACTIONS (2)
  - Joint effusion [Recovered/Resolved]
  - Vaginal infection [Recovered/Resolved]

NARRATIVE: CASE EVENT DATE: 20210518
